FAERS Safety Report 13321355 (Version 5)
Quarter: 2017Q3

REPORT INFORMATION
  Report Type: Spontaneous
  Country: US (occurrence: US)
  Receive Date: 20170309
  Receipt Date: 20170817
  Transmission Date: 20171127
  Serious: Yes (Congenital Anomaly, Other)
  Sender: FDA-Public Use
  Company Number: PHEH2017US006483

PATIENT
  Sex: Female

DRUGS (4)
  1. ZOFRAN [Suspect]
     Active Substance: ONDANSETRON HYDROCHLORIDE
     Indication: FOETAL EXPOSURE DURING PREGNANCY
     Dosage: MOTHER^S DOSE: 1 DF, TID
     Route: 064
  2. ONDANSETRON [Suspect]
     Active Substance: ONDANSETRON
     Indication: FOETAL EXPOSURE DURING PREGNANCY
     Dosage: MOTHER^S DOSE: 1 DF, Q8H
     Route: 064
  3. ONDANSETRON [Suspect]
     Active Substance: ONDANSETRON
     Indication: FOETAL EXPOSURE DURING PREGNANCY
     Dosage: MOTHER^S DOSE: 1 DF, Q8H
     Route: 064
  4. ZOFRAN ODT [Suspect]
     Active Substance: ONDANSETRON HYDROCHLORIDE
     Indication: FOETAL EXPOSURE DURING PREGNANCY
     Dosage: MOTHER^S DOSE: 1 DF, PRN
     Route: 064

REACTIONS (24)
  - Emotional distress [Unknown]
  - Dysphemia [Unknown]
  - Bronchitis viral [Unknown]
  - Genital labial adhesions [Unknown]
  - Sinusitis [Unknown]
  - Tachycardia foetal [Unknown]
  - Poor weight gain neonatal [Unknown]
  - Umbilical hernia [Unknown]
  - Diarrhoea [Unknown]
  - Pyrexia [Unknown]
  - Bronchiolitis [Unknown]
  - Congenital tongue anomaly [Unknown]
  - Croup infectious [Unknown]
  - Dermatitis diaper [Unknown]
  - Constipation [Unknown]
  - Cleft lip and palate [Unknown]
  - Foetal exposure during pregnancy [Unknown]
  - Selective eating disorder [Unknown]
  - Abdominal pain [Unknown]
  - Otitis media acute [Unknown]
  - Upper respiratory tract infection [Unknown]
  - Conjunctivitis [Unknown]
  - Positional plagiocephaly [Unknown]
  - Dermatitis [Unknown]
